FAERS Safety Report 14186884 (Version 1)
Quarter: 2017Q4

REPORT INFORMATION
  Report Type: Spontaneous
  Country: US (occurrence: None)
  Receive Date: 20171113
  Receipt Date: 20171113
  Transmission Date: 20180321
  Serious: Yes (Life-Threatening, Hospitalization, Disabling, Other)
  Sender: FDA-Public Use
  Company Number: None

PATIENT
  Age: 64 Year
  Sex: Female
  Weight: 45.36 kg

DRUGS (1)
  1. TESTOPEL [Suspect]
     Active Substance: TESTOSTERONE

REACTIONS (5)
  - Fatigue [None]
  - Arthralgia [None]
  - Joint swelling [None]
  - Peripheral swelling [None]
  - Cyst [None]

NARRATIVE: CASE EVENT DATE: 20170922
